FAERS Safety Report 15761913 (Version 3)
Quarter: 2019Q1

REPORT INFORMATION
  Report Type: Spontaneous
  Country: CA (occurrence: CA)
  Receive Date: 20181226
  Receipt Date: 20190313
  Transmission Date: 20190417
  Serious: Yes (Hospitalization)
  Sender: FDA-Public Use
  Company Number: CA-PFIZER INC-2018378747

PATIENT
  Age: 75 Year
  Sex: Male

DRUGS (12)
  1. CORTIMENT [BUDESONIDE] [Concomitant]
     Active Substance: BUDESONIDE
     Dosage: 9 MG, DAILY
  2. MEZAVANT [Concomitant]
     Active Substance: MESALAMINE
     Indication: COLITIS ULCERATIVE
     Dosage: 4 DF (TABLETS) DAILY
  3. XELJANZ [Suspect]
     Active Substance: TOFACITINIB CITRATE
     Dosage: 10 MG, 2X/DAY
     Route: 048
  4. PREDNISONE. [Concomitant]
     Active Substance: PREDNISONE
     Dosage: UNK
  5. FLAGYL [METRONIDAZOLE BENZOATE] [Concomitant]
     Active Substance: METRONIDAZOLE BENZOATE
     Indication: CLOSTRIDIUM DIFFICILE INFECTION
     Dosage: UNK
  6. RABIES VACCIN [Concomitant]
     Indication: IMMUNISATION
     Dosage: UNK UNK, SINGLE
     Dates: start: 20181227
  7. XELJANZ [Suspect]
     Active Substance: TOFACITINIB CITRATE
     Indication: COLITIS ULCERATIVE
     Dosage: 10 MG, 2X/DAY X 8 WEEKS THEN 10 MG 2X/DAY
     Route: 048
     Dates: start: 20180917, end: 201810
  8. ASACOL [Concomitant]
     Active Substance: MESALAMINE
     Dosage: UNK
  9. VANCOMYCIN [Concomitant]
     Active Substance: VANCOMYCIN
     Indication: CLOSTRIDIUM DIFFICILE INFECTION
     Dosage: 4X/DAY
     Dates: start: 20180903
  10. CORTIFOAM [Concomitant]
     Active Substance: HYDROCORTISONE ACETATE
     Dosage: UNK
  11. MULTIVITAMIN [VITAMINS NOS] [Concomitant]
     Dosage: UNK
  12. SALOFALK [MESALAZINE] [Concomitant]
     Active Substance: MESALAMINE
     Indication: COLITIS ULCERATIVE
     Dosage: UNK

REACTIONS (1)
  - Animal bite [Recovering/Resolving]

NARRATIVE: CASE EVENT DATE: 20181215
